FAERS Safety Report 26065440 (Version 1)
Quarter: 2025Q4

REPORT INFORMATION
  Report Type: Spontaneous
  Country: US (occurrence: US)
  Receive Date: 20251119
  Receipt Date: 20251119
  Transmission Date: 20260118
  Serious: No
  Sender: BRISTOL-MYERS SQUIBB COMPANY
  Company Number: US-BRISTOL-MYERS SQUIBB COMPANY-2025-156477

PATIENT
  Age: 77 Year
  Sex: Male

DRUGS (1)
  1. LENALIDOMIDE [Suspect]
     Active Substance: LENALIDOMIDE
     Indication: Plasma cell myeloma
     Dosage: TAKE 1CAPSULE BY MOUTH WHOLE WITH WATER W/ OR W/O FOOD AT SAME TIME EVERY OTHER DAY FOR 3WEEKS ON AND 1 WEEK OFF
     Route: 048
     Dates: start: 20240822

REACTIONS (1)
  - Pruritus [Unknown]
